FAERS Safety Report 9562094 (Version 1)
Quarter: 2013Q3

REPORT INFORMATION
  Report Type: Spontaneous
  Country: BR (occurrence: BR)
  Receive Date: 20130927
  Receipt Date: 20130927
  Transmission Date: 20140515
  Serious: Yes (Death)
  Sender: FDA-Public Use
  Company Number: BR-PFIZER INC-2013273467

PATIENT
  Age: 85 Year
  Sex: Male
  Weight: 80 kg

DRUGS (7)
  1. ALDACTONE [Concomitant]
     Indication: BLOOD PRESSURE ABNORMAL
     Dosage: UNK
     Dates: start: 2003
  2. ARADOIS [Concomitant]
     Indication: HYPERTENSION
     Dosage: UNK
     Dates: start: 2008
  3. DIGOXIN [Concomitant]
     Indication: CARDIAC DISORDER
     Dosage: UNK
  4. FUROSEMIDE [Concomitant]
     Indication: HYPERTENSION
     Dosage: UNK
     Dates: start: 2003
  5. INSULIN [Concomitant]
     Indication: DIABETES MELLITUS
     Dosage: UNK
     Dates: start: 2005
  6. METFORMIN [Concomitant]
     Indication: DIABETES MELLITUS
     Dosage: UNK
     Dates: start: 2005
  7. XALATAN [Suspect]
     Indication: INTRAOCULAR PRESSURE INCREASED
     Dosage: UNK
     Route: 047
     Dates: start: 2011

REACTIONS (1)
  - Infarction [Fatal]
